FAERS Safety Report 7465481-8 (Version None)
Quarter: 2011Q2

REPORT INFORMATION
  Report Type: 
  Country: None (occurrence: None)
  Receive Date: 20110509
  Receipt Date: 20110504
  Transmission Date: 20111010
  Serious: Yes (Hospitalization)
  Sender: FDA-Public Use
  Company Number: DE-ROCHE-761554

PATIENT
  Sex: Male
  Weight: 69 kg

DRUGS (8)
  1. OXALIPLATIN [Suspect]
     Dosage: TOTAL DOSE: 152 MG. LAST DOSE PRIOR TO SAE: 04 APRIL 2011.
     Route: 042
     Dates: start: 20110216
  2. NEURALGIN [Concomitant]
     Dosage: TOAL DAILY DOSE: 4 X 30 TIP.
  3. MCP [Concomitant]
     Dosage: TDD: AS NECESSARY.  PRN.
  4. FLUOROURACIL [Suspect]
     Dosage: TOTAL DOSE: 4296 MG. LAST DOSE PRIOR TO SAE: 04 APRIL 2011.
     Route: 042
     Dates: start: 20110216
  5. LEUCOVORIN CALCIUM [Suspect]
     Dosage: TOTAL DOSE: 716 MG. LAST DOSE PRIOR TO SAE: 04 APRIL 2011.
     Route: 042
     Dates: start: 20110216
  6. AVASTIN [Suspect]
     Dosage: TOTAL DOSE: 345 MG. LAST DOSE PRIOR TO SAE: 04 APRIL 2011.
     Route: 042
     Dates: start: 20110216
  7. PANTOZOL [Concomitant]
  8. TAMSULIN [Concomitant]

REACTIONS (2)
  - DEHYDRATION [None]
  - GENERAL PHYSICAL HEALTH DETERIORATION [None]
